FAERS Safety Report 6741969-X (Version None)
Quarter: 2010Q2

REPORT INFORMATION
  Report Type: 
  Country: None (occurrence: None)
  Receive Date: 20100526
  Receipt Date: 20100518
  Transmission Date: 20101027
  Serious: Yes (Other)
  Sender: FDA-Public Use
  Company Number: US-ROCHE-704694

PATIENT
  Sex: Female
  Weight: 88.9 kg

DRUGS (1)
  1. CAPECITABINE [Suspect]
     Indication: BREAST CANCER
     Route: 048
     Dates: start: 20100319, end: 20100517

REACTIONS (1)
  - MALIGNANT NEOPLASM PROGRESSION [None]
